FAERS Safety Report 4660032-5 (Version None)
Quarter: 2005Q2

REPORT INFORMATION
  Report Type: 
  Country: None (occurrence: None)
  Receive Date: 20050512
  Receipt Date: 20050502
  Transmission Date: 20051028
  Serious: Yes (Hospitalization)
  Sender: FDA-Public Use
  Company Number: DE-BOEHRINGER INGELHEIM PHARMACEUTICALS, INC.-2005-DE-01653DE

PATIENT
  Sex: Male
  Weight: 55 kg

DRUGS (3)
  1. SIFROL [Suspect]
     Indication: PARKINSON'S DISEASE
     Route: 048
     Dates: end: 20050308
  2. DOPADURA [Concomitant]
     Dosage: LEVODOPA 400 MG/CARBIDOPA 100 MG
     Route: 048
  3. AMANTADINE HCL [Concomitant]
     Route: 048
     Dates: end: 20050308

REACTIONS (3)
  - CONDITION AGGRAVATED [None]
  - GENERAL PHYSICAL HEALTH DETERIORATION [None]
  - THROMBOCYTOPENIA [None]
